FAERS Safety Report 7925848-8 (Version None)
Quarter: 2011Q4

REPORT INFORMATION
  Report Type: 
  Country: None (occurrence: None)
  Receive Date: 20111118
  Receipt Date: 20110413
  Transmission Date: 20120403
  Serious: Yes (Hospitalization)
  Sender: FDA-Public Use
  Company Number: US-AMGEN-USASP2011004985

PATIENT
  Age: 59 Year
  Sex: Female
  Weight: 61.678 kg

DRUGS (4)
  1. ENBREL [Suspect]
     Dosage: 50 MG, QWK
     Route: 058
     Dates: start: 20090101, end: 20100113
  2. SIMPONI [Concomitant]
  3. ENBREL [Suspect]
     Indication: PSORIASIS
     Dosage: 50 MG, UNK
     Route: 058
     Dates: start: 20080101
  4. METHOTREXATE [Concomitant]

REACTIONS (5)
  - STAPHYLOCOCCAL INFECTION [None]
  - PNEUMONIA [None]
  - INTERSTITIAL LUNG DISEASE [None]
  - URINARY TRACT INFECTION [None]
  - BRONCHITIS [None]
